FAERS Safety Report 11498304 (Version 2)
Quarter: 2015Q3

REPORT INFORMATION
  Report Type: Report from Study
  Country: US (occurrence: US)
  Receive Date: 20150911
  Receipt Date: 20150918
  Transmission Date: 20151125
  Serious: Yes (Other)
  Sender: FDA-Public Use
  Company Number: US-ABBVIE-15K-163-1461698-00

PATIENT
  Age: 56 Year
  Sex: Female
  Weight: 59.93 kg

DRUGS (4)
  1. HUMIRA [Suspect]
     Active Substance: ADALIMUMAB
     Indication: PSORIASIS
  2. GABAPENTIN. [Concomitant]
     Active Substance: GABAPENTIN
     Indication: NEUROPATHY PERIPHERAL
  3. OMEPRAZOLE. [Concomitant]
     Active Substance: OMEPRAZOLE
     Indication: GASTROOESOPHAGEAL REFLUX DISEASE
  4. HUMIRA [Suspect]
     Active Substance: ADALIMUMAB
     Indication: PSORIATIC ARTHROPATHY
     Route: 058
     Dates: start: 201312, end: 201509

REACTIONS (8)
  - Antinuclear antibody positive [Unknown]
  - Protein total increased [Unknown]
  - Blood calcium increased [Unknown]
  - Endometrial thickening [Unknown]
  - Uterine haemorrhage [Not Recovered/Not Resolved]
  - Blood alkaline phosphatase increased [Unknown]
  - Uterine disorder [Unknown]
  - Blood creatine phosphokinase increased [Unknown]

NARRATIVE: CASE EVENT DATE: 201504
